FAERS Safety Report 16586888 (Version 1)
Quarter: 2019Q3

REPORT INFORMATION
  Report Type: Spontaneous
  Country: US (occurrence: US)
  Receive Date: 20190717
  Receipt Date: 20190717
  Transmission Date: 20191004
  Serious: Yes (Other)
  Sender: FDA-Public Use
  Company Number: US-SA-2019SA186909

PATIENT
  Sex: Male

DRUGS (1)
  1. TAXOTERE [Suspect]
     Active Substance: DOCETAXEL
     Indication: PROSTATE CANCER
     Dosage: UNK UNK, UNK
     Route: 065

REACTIONS (1)
  - Stevens-Johnson syndrome [Unknown]
